FAERS Safety Report 19101378 (Version 1)
Quarter: 2021Q2

REPORT INFORMATION
  Report Type: Report from Study
  Country: GB (occurrence: GB)
  Receive Date: 20210407
  Receipt Date: 20210407
  Transmission Date: 20210717
  Serious: Yes (Other)
  Sender: FDA-Public Use
  Company Number: GB-SAMSUNG BIOEPIS-SB-2021-08582

PATIENT
  Sex: Male

DRUGS (2)
  1. IMRALDI [Suspect]
     Active Substance: ADALIMUMAB
     Indication: COLITIS ULCERATIVE
     Dosage: LOADING DOSE AT WEEK ZERO
     Route: 058
     Dates: start: 20210302
  2. IMRALDI [Suspect]
     Active Substance: ADALIMUMAB
     Dosage: LOADING DOSE AT WEEK TWO
     Route: 058

REACTIONS (2)
  - COVID-19 [Unknown]
  - Sleep disorder [Unknown]
